FAERS Safety Report 9408550 (Version 1)
Quarter: 2013Q3

REPORT INFORMATION
  Report Type: Spontaneous
  Country: US (occurrence: US)
  Receive Date: 20130718
  Receipt Date: 20130718
  Transmission Date: 20140515
  Serious: No
  Sender: FDA-Public Use
  Company Number: US-ASTELLAS-2009US001291

PATIENT
  Age: 18 Year
  Sex: Female
  Weight: 54 kg

DRUGS (3)
  1. VESICARE [Suspect]
     Indication: BLADDER REPAIR
     Dosage: 10 MG, UID/QD
     Route: 048
     Dates: start: 20090422, end: 20090426
  2. BACTRIM [Concomitant]
     Indication: URINARY TRACT INFECTION
  3. MUCINEX [Concomitant]
     Indication: PRODUCT USED FOR UNKNOWN INDICATION

REACTIONS (3)
  - Vision blurred [Not Recovered/Not Resolved]
  - Dry eye [Not Recovered/Not Resolved]
  - Constipation [Not Recovered/Not Resolved]
